FAERS Safety Report 6613046-X (Version None)
Quarter: 2010Q1

REPORT INFORMATION
  Report Type: 
  Country: None (occurrence: None)
  Receive Date: 20100304
  Receipt Date: 20100225
  Transmission Date: 20100710
  Serious: Yes (Hospitalization, Other)
  Sender: FDA-Public Use
  Company Number: US-BIOGENIDEC-207266

PATIENT
  Age: 61 Year
  Sex: Female

DRUGS (2)
  1. AVONEX [Suspect]
     Indication: MULTIPLE SCLEROSIS
     Route: 030
     Dates: start: 19960101
  2. TEGRETOL [Concomitant]

REACTIONS (4)
  - OVARIAN CANCER [None]
  - OVARIAN CANCER METASTATIC [None]
  - POSTMENOPAUSAL HAEMORRHAGE [None]
  - RETROPERITONEAL HAEMATOMA [None]
